FAERS Safety Report 17923902 (Version 1)
Quarter: 2020Q2

REPORT INFORMATION
  Report Type: Report from Study
  Country: TR (occurrence: TR)
  Receive Date: 20200622
  Receipt Date: 20200622
  Transmission Date: 20200714
  Serious: Yes (Death, Other)
  Sender: FDA-Public Use
  Company Number: TR-PFIZER INC-2020236756

PATIENT

DRUGS (2)
  1. ETOPOSIDE. [Suspect]
     Active Substance: ETOPOSIDE
     Indication: SMALL CELL LUNG CANCER
     Dosage: 100 MG/M2, CYCLIC, DAYS 1-3, (21-DAY CYCLES FOR 4-6 CYCLES)
     Route: 042
  2. CARBOPLATIN. [Suspect]
     Active Substance: CARBOPLATIN
     Indication: SMALL CELL LUNG CANCER
     Dosage: AUC 6 MG/ML/MIN ON DAY 1, (21-DAY CYCLES FOR 4-6 CYCLES)
     Route: 042

REACTIONS (3)
  - Febrile neutropenia [Fatal]
  - Neutropenia [Unknown]
  - Sepsis [Fatal]
